FAERS Safety Report 8468182-2 (Version None)
Quarter: 2012Q2

REPORT INFORMATION
  Report Type: 
  Country: None (occurrence: None)
  Receive Date: 20120626
  Receipt Date: 20120615
  Transmission Date: 20120825
  Serious: Yes (Hospitalization, Other)
  Sender: FDA-Public Use
  Company Number: US-ROCHE-784945

PATIENT
  Sex: Female
  Weight: 70.3 kg

DRUGS (2)
  1. ORTHO TRI-CYCLEN [Concomitant]
     Indication: CONTRACEPTION
  2. ACCUTANE [Suspect]
     Indication: ACNE
     Route: 065
     Dates: start: 19960101, end: 20010101

REACTIONS (9)
  - CONTUSION [None]
  - POST-TRAUMATIC STRESS DISORDER [None]
  - DEPRESSION [None]
  - IRRITABLE BOWEL SYNDROME [None]
  - BIPOLAR DISORDER [None]
  - CROHN'S DISEASE [None]
  - INFLAMMATORY BOWEL DISEASE [None]
  - COLITIS ULCERATIVE [None]
  - RASH [None]
